FAERS Safety Report 5107178-5 (Version None)
Quarter: 2006Q3

REPORT INFORMATION
  Report Type: 
  Country: None (occurrence: None)
  Receive Date: 20060913
  Receipt Date: 20060824
  Transmission Date: 20061208
  Serious: Yes (Other)
  Sender: FDA-Public Use
  Company Number: US200606004666

PATIENT
  Sex: Female

DRUGS (2)
  1. FORTEO [Suspect]
     Indication: OSTEOPOROSIS
     Dosage: 20 UG,
     Dates: start: 20050101
  2. FORTEO [Concomitant]

REACTIONS (4)
  - BLINDNESS [None]
  - INTRAOCULAR MELANOMA [None]
  - MACULAR DEGENERATION [None]
  - RETINAL HAEMORRHAGE [None]
